FAERS Safety Report 18583893 (Version 1)
Quarter: 2020Q4

REPORT INFORMATION
  Report Type: Spontaneous
  Country: IT (occurrence: IT)
  Receive Date: 20201207
  Receipt Date: 20201207
  Transmission Date: 20210114
  Serious: Yes (Other)
  Sender: FDA-Public Use
  Company Number: IT-AMGEN-ITASP2020194700

PATIENT
  Age: 31 Week
  Sex: Male
  Weight: 1.32 kg

DRUGS (1)
  1. FILGRASTIM [Suspect]
     Active Substance: FILGRASTIM
     Indication: NEUTROPENIA NEONATAL
     Dosage: 10 MICROGRAM/KILOGRAM, QD 15-30 MIN, FOR 3 CONSECUTIVE DAYS.
     Route: 042

REACTIONS (2)
  - Neutropenia [Recovered/Resolved]
  - Therapeutic product effect decreased [Unknown]
